FAERS Safety Report 11285729 (Version 5)
Quarter: 2015Q4

REPORT INFORMATION
  Report Type: Spontaneous
  Country: US (occurrence: US)
  Receive Date: 20150721
  Receipt Date: 20151022
  Transmission Date: 20160304
  Serious: Yes (Other)
  Sender: FDA-Public Use
  Company Number: US-ROCHE-1610255

PATIENT

DRUGS (1)
  1. ACTEMRA [Suspect]
     Active Substance: TOCILIZUMAB
     Indication: PRODUCT USED FOR UNKNOWN INDICATION
     Dosage: VIAL, 80 MG/4 ML
     Route: 042

REACTIONS (6)
  - Vomiting [Unknown]
  - Diarrhoea [Unknown]
  - Muscle spasms [Unknown]
  - Nausea [Unknown]
  - Product quality issue [Unknown]
  - Dyspnoea [Unknown]
